FAERS Safety Report 7578646-1 (Version None)
Quarter: 2011Q2

REPORT INFORMATION
  Report Type: 
  Country: None (occurrence: None)
  Receive Date: 20110628
  Receipt Date: 20110617
  Transmission Date: 20111010
  Serious: Yes (Hospitalization, Other)
  Sender: FDA-Public Use
  Company Number: PHHY2011FR53979

PATIENT
  Sex: Female

DRUGS (23)
  1. CRESTOR [Concomitant]
     Dosage: 5 MG, 1 QD
  2. METHOTREXATE [Interacting]
     Dosage: 2 TABLETS PER WEEK
     Route: 048
     Dates: end: 20100501
  3. ANAFRANIL [Concomitant]
     Dosage: 75 MG, 1 QD
  4. COLCHICINE [Interacting]
     Dosage: UNK UKN, UNK
  5. OXYCODONE HCL [Concomitant]
     Dosage: 5 MG, UNK
     Route: 048
  6. VOLTAREN [Suspect]
     Dosage: UNK UKN, UNK
     Route: 048
     Dates: start: 20110327, end: 20110330
  7. TERCIAN [Concomitant]
     Dosage: 5 DRP, UNK
  8. EOSINE [Concomitant]
     Dosage: UNK
  9. METHOTREXATE [Interacting]
     Indication: PEMPHIGOID
     Dosage: 1 DF, 1 TABLET
     Route: 048
     Dates: start: 20080101
  10. METHOTREXATE [Interacting]
     Dosage: 6 TABLETS (15MG) PER WEEK
     Route: 048
     Dates: start: 20110323, end: 20110330
  11. XANAX [Concomitant]
     Dosage: 0.25 MG, QID
  12. CLOBETASOL PROPIONATE [Concomitant]
     Dosage: UNK
  13. ACETAMINOPHEN AND TRAMADOL HCL [Concomitant]
     Indication: PAIN
     Dosage: UNK
  14. AUGMENTIN '125' [Interacting]
     Indication: ERYSIPELAS
     Dosage: 3 DF, QD
     Route: 048
     Dates: start: 20110331, end: 20110307
  15. ESOMEPRAZOLE MAGNESIUM [Concomitant]
     Dosage: 20 MG, 1 QD
  16. LASIX [Concomitant]
     Dosage: 20 MG, 1 QD
  17. PLAVIX [Concomitant]
     Dosage: 75 MG, 1 QD
  18. FOLIC ACID [Concomitant]
     Dosage: UNK, BID
  19. LANTUS [Concomitant]
     Dosage: 18 IU, 1 QD
  20. NOVORAPID [Concomitant]
     Dosage: UNK
  21. IBUPROFEN [Interacting]
     Indication: ARTHRALGIA
     Dosage: UNK
     Route: 048
     Dates: end: 20110326
  22. ECONAZOLE NITRATE [Concomitant]
     Dosage: UNK UKN, UNK
  23. CALCIPARINE [Concomitant]
     Dosage: 0.2 MG, BID

REACTIONS (21)
  - MOUTH ULCERATION [None]
  - DERMATITIS BULLOUS [None]
  - RENAL FAILURE ACUTE [None]
  - SKIN LESION [None]
  - DRUG INTERACTION [None]
  - BLOOD GLUCOSE INCREASED [None]
  - MUSCULAR WEAKNESS [None]
  - MUCOSAL EROSION [None]
  - RASH [None]
  - HYPERKALAEMIA [None]
  - THROMBOCYTOPENIA [None]
  - BLOOD CREATININE INCREASED [None]
  - ANAEMIA [None]
  - ERYSIPELAS [None]
  - GAMMA-GLUTAMYLTRANSFERASE INCREASED [None]
  - AZOTAEMIA [None]
  - RED BLOOD CELL COUNT DECREASED [None]
  - APLASIA [None]
  - PANCYTOPENIA [None]
  - EPIDERMAL NECROSIS [None]
  - NEUTROPENIA [None]
